FAERS Safety Report 20919542 (Version 1)
Quarter: 2022Q2

REPORT INFORMATION
  Report Type: Other
  Country: US (occurrence: None)
  Receive Date: 20220606
  Receipt Date: 20220606
  Transmission Date: 20220721
  Serious: Yes (Life-Threatening, Other)
  Sender: FDA-Public Use
  Company Number: US-ROCHE-2123310

PATIENT
  Sex: Male

DRUGS (21)
  1. VALCYTE [Suspect]
     Active Substance: VALGANCICLOVIR HYDROCHLORIDE
     Indication: Lung transplant
     Route: 048
  2. CELLCEPT [Suspect]
     Active Substance: MYCOPHENOLATE MOFETIL
     Indication: Lung transplant
     Route: 048
  3. CELLCEPT [Suspect]
     Active Substance: MYCOPHENOLATE MOFETIL
     Route: 048
  4. CELLCEPT [Suspect]
     Active Substance: MYCOPHENOLATE MOFETIL
     Route: 048
  5. CELLCEPT [Suspect]
     Active Substance: MYCOPHENOLATE MOFETIL
     Dosage: TAKE 5 CAPSULES (1250 MG) BY MOUTH TWO TIMES DAILY
     Route: 048
  6. ACYCLOVIR [Concomitant]
     Active Substance: ACYCLOVIR
     Route: 048
  7. ALENDRONATE [Concomitant]
     Active Substance: ALENDRONATE SODIUM
     Dosage: TAKE ONE TABLET BY MOUTH ON AN EMPTY STOMACH WITH FULL GLASS OF WATER.
     Route: 048
  8. ASPIRIN [Concomitant]
     Active Substance: ASPIRIN
     Route: 048
  9. AZITHROMYCIN [Concomitant]
     Active Substance: AZITHROMYCIN
     Dosage: ONE TABLET TO BE TAKEN BY MOUTH EVERY MONDAY, WEDNESDAY AND FRIDAY AT 9 A.M.
  10. CALCITRIOL [Concomitant]
     Active Substance: CALCITRIOL
  11. OSCAL D [Concomitant]
     Active Substance: CALCIUM CARBONATE\CHOLECALCIFEROL
     Route: 048
  12. COTRIMOXAZOLE [Concomitant]
     Active Substance: SULFAMETHOXAZOLE\TRIMETHOPRIM
     Dosage: 800-160 MG TABLET, TAKE ONE TABLET TWICE A DAY ON MONDAYS AND THRUSDAY
  13. ERGOCALCIFEROL [Concomitant]
     Active Substance: ERGOCALCIFEROL
     Dosage: ONE CAPSULE TWICE PER WEEK
     Route: 048
  14. FLUCONAZOLE [Concomitant]
     Active Substance: FLUCONAZOLE
  15. MAGNESIUM OXIDE [Concomitant]
     Active Substance: MAGNESIUM OXIDE
     Route: 048
  16. METOPROLOL TARTRATE [Concomitant]
     Active Substance: METOPROLOL TARTRATE
     Route: 048
  17. MYCOPHENOLIC ACID [Concomitant]
     Active Substance: MYCOPHENOLIC ACID
  18. PANTOPRAZOLE [Concomitant]
     Active Substance: PANTOPRAZOLE
     Route: 048
  19. PRAVASTATIN [Concomitant]
     Active Substance: PRAVASTATIN
     Dosage: AT BEDTIME
     Route: 048
  20. TACROLIMUS [Concomitant]
     Active Substance: TACROLIMUS
  21. TOBRAMYCIN [Concomitant]
     Active Substance: TOBRAMYCIN
     Dosage: 60 MG/ML NEBULIZER SOLUTION, TAKE 300 MG BY NEBULIZATION.

REACTIONS (20)
  - Transplantation complication [Unknown]
  - Cytomegalovirus infection reactivation [Unknown]
  - Bronchopleural fistula [Recovered/Resolved]
  - Bronchoalveolar lavage [Not Recovered/Not Resolved]
  - Squamous cell carcinoma [Recovered/Resolved]
  - Pulmonary function test decreased [Unknown]
  - Squamous cell carcinoma of skin [Unknown]
  - Rhinovirus infection [Recovered/Resolved]
  - Nephrolithiasis [Recovered/Resolved]
  - Human metapneumovirus test positive [Recovered/Resolved]
  - Leukopenia [Recovered/Resolved]
  - Skin cancer [Unknown]
  - Skin lesion [Unknown]
  - Neoplasm [Unknown]
  - Headache [Unknown]
  - Lip neoplasm [Unknown]
  - Productive cough [Unknown]
  - Upper respiratory tract infection [Unknown]
  - Dyspnoea exertional [Unknown]
  - Off label use [Unknown]

NARRATIVE: CASE EVENT DATE: 20130101
